FAERS Safety Report 19322132 (Version 2)
Quarter: 2021Q2

REPORT INFORMATION
  Report Type: Spontaneous
  Country: US (occurrence: US)
  Receive Date: 20210528
  Receipt Date: 20210625
  Transmission Date: 20210717
  Serious: Yes (Other)
  Sender: FDA-Public Use
  Company Number: US-009507513-2105USA006490

PATIENT
  Age: 74 Year
  Sex: Female

DRUGS (4)
  1. KEYTRUDA [Suspect]
     Active Substance: PEMBROLIZUMAB
     Indication: ENDOMETRIAL CANCER
     Dosage: UNK
  2. LENVATINIB MESYLATE [Suspect]
     Active Substance: LENVATINIB MESYLATE
     Indication: ENDOMETRIAL CANCER
     Dosage: 14 MILLIGRAM DAILY
     Route: 048
     Dates: start: 20210420, end: 20210602
  3. LENVATINIB MESYLATE [Suspect]
     Active Substance: LENVATINIB MESYLATE
     Dosage: 14 MILLIGRAM DAILY
     Route: 048
     Dates: start: 20210616
  4. LENVATINIB MESYLATE [Suspect]
     Active Substance: LENVATINIB MESYLATE
     Dosage: 14 MILLIGRAM DAILY
     Route: 048
     Dates: start: 20210614, end: 20210615

REACTIONS (7)
  - Thyroid disorder [Unknown]
  - Blood pressure increased [Unknown]
  - Blood pressure increased [Unknown]
  - Gingival pain [Recovered/Resolved]
  - Dysphonia [Unknown]
  - Blood pressure increased [Recovered/Resolved]
  - Hypothyroidism [Unknown]

NARRATIVE: CASE EVENT DATE: 2021
